FAERS Safety Report 9536014 (Version 1)
Quarter: 2013Q2

REPORT INFORMATION
  Report Type: Spontaneous
  Country: US (occurrence: None)
  Receive Date: 20130507
  Receipt Date: 20130507
  Transmission Date: 20140414
  Serious: Yes (Other)
  Sender: FDA-Public Use
  Company Number: PHEH2012US024016

PATIENT
  Age: 14 Year
  Sex: Female

DRUGS (4)
  1. AFINITOR [Suspect]
     Indication: ACUTE MYELOID LEUKAEMIA
     Route: 048
     Dates: start: 20120912
  2. PHENOBARBITAL ( PHENOBARBITAL) [Concomitant]
  3. LOSARTAN ( LOSARTAN) [Concomitant]
  4. LEVETIRACETAM ( LEVETIRACETAM) [Concomitant]

REACTIONS (2)
  - Blood cholesterol increased [None]
  - Cough [None]
